FAERS Safety Report 16806650 (Version 1)
Quarter: 2019Q3

REPORT INFORMATION
  Report Type: Spontaneous
  Country: NL (occurrence: NL)
  Receive Date: 20190913
  Receipt Date: 20190913
  Transmission Date: 20191005
  Serious: Yes (Death, Other)
  Sender: FDA-Public Use
  Company Number: NL-MYLANLABS-2019M1086446

PATIENT
  Sex: Male

DRUGS (7)
  1. OXCARBAZEPINE. [Suspect]
     Active Substance: OXCARBAZEPINE
     Indication: EPILEPSY
     Dosage: DOSE OF TRILEPTAL WAS INCREASED
  2. DEPAKIN [Suspect]
     Active Substance: VALPROATE SODIUM
     Indication: EPILEPSY
     Dosage: UNK
  3. PHENYTOIN. [Suspect]
     Active Substance: PHENYTOIN
     Indication: EPILEPSY
     Dosage: UNK
  4. LEVETIRACETAM. [Suspect]
     Active Substance: LEVETIRACETAM
     Indication: EPILEPSY
     Dosage: UNK
  5. LAMOTRIGINE. [Suspect]
     Active Substance: LAMOTRIGINE
     Indication: EPILEPSY
     Dosage: UNK
  6. LACOSAMIDE. [Suspect]
     Active Substance: LACOSAMIDE
     Indication: EPILEPSY
     Dosage: UNK
  7. FRISIUM [Suspect]
     Active Substance: CLOBAZAM
     Indication: EPILEPSY
     Dosage: UNK

REACTIONS (5)
  - Tonic clonic movements [Unknown]
  - Therapeutic product effect incomplete [Unknown]
  - Intentional product misuse [Unknown]
  - Seizure [Fatal]
  - Product dose omission [Unknown]
